FAERS Safety Report 11872244 (Version 1)
Quarter: 2015Q4

REPORT INFORMATION
  Report Type: Spontaneous
  Country: US (occurrence: US)
  Receive Date: 20151228
  Receipt Date: 20151228
  Transmission Date: 20160305
  Serious: Yes (Other)
  Sender: FDA-Public Use
  Company Number: US-IGSA-GTI003217

PATIENT
  Age: 64 Year
  Sex: Female
  Weight: 74 kg

DRUGS (26)
  1. MONTELUKAST [Concomitant]
     Active Substance: MONTELUKAST SODIUM
  2. PROLASTIN-C [Suspect]
     Active Substance: .ALPHA.1-PROTEINASE INHIBITOR HUMAN
     Indication: ALPHA-1 ANTI-TRYPSIN DEFICIENCY
     Dates: start: 20150316
  3. SPIRIVA [Concomitant]
     Active Substance: TIOTROPIUM BROMIDE MONOHYDRATE
  4. PROAIR HFA [Concomitant]
     Active Substance: ALBUTEROL SULFATE
  5. PREDNISONE. [Concomitant]
     Active Substance: PREDNISONE
  6. AUGMENTIN [Concomitant]
     Active Substance: AMOXICILLIN\CLAVULANATE POTASSIUM
  7. SUCRALFATE. [Concomitant]
     Active Substance: SUCRALFATE
  8. CLINDAMYCIN [Concomitant]
     Active Substance: CLINDAMYCIN\CLINDAMYCIN PHOSPHATE
  9. CETIRIZINE [Concomitant]
     Active Substance: CETIRIZINE HYDROCHLORIDE
  10. FORADIL [Concomitant]
     Active Substance: FORMOTEROL FUMARATE
  11. ASMANEX [Concomitant]
     Active Substance: MOMETASONE FUROATE
  12. NITROFURANTOIN. [Concomitant]
     Active Substance: NITROFURANTOIN
  13. SINGULAIR [Concomitant]
     Active Substance: MONTELUKAST SODIUM
  14. AFRIN [Concomitant]
     Active Substance: OXYMETAZOLINE
  15. XOLAIR [Concomitant]
     Active Substance: OMALIZUMAB
  16. NASACORT [Concomitant]
     Active Substance: TRIAMCINOLONE ACETONIDE
  17. NYSTATIN. [Concomitant]
     Active Substance: NYSTATIN
  18. FLUCONAZOLE. [Concomitant]
     Active Substance: FLUCONAZOLE
  19. ALBUTEROL /00139501/ [Concomitant]
     Active Substance: ALBUTEROL
  20. MUCINEX [Concomitant]
     Active Substance: GUAIFENESIN
  21. OXYBUTYNIN [Concomitant]
     Active Substance: OXYBUTYNIN
  22. PRILOSEC [Concomitant]
     Active Substance: OMEPRAZOLE MAGNESIUM
  23. PROLASTIN-C [Suspect]
     Active Substance: .ALPHA.1-PROTEINASE INHIBITOR HUMAN
     Indication: ALPHA-1 ANTI-TRYPSIN DEFICIENCY
     Route: 042
     Dates: start: 20150324, end: 20150513
  24. NEXIUM [Concomitant]
     Active Substance: ESOMEPRAZOLE MAGNESIUM
  25. PROLASTIN-C [Suspect]
     Active Substance: .ALPHA.1-PROTEINASE INHIBITOR HUMAN
     Indication: ALPHA-1 ANTI-TRYPSIN DEFICIENCY
     Route: 042
     Dates: start: 20150508
  26. PROAIR HFA [Concomitant]
     Active Substance: ALBUTEROL SULFATE

REACTIONS (10)
  - Dyspnoea [Not Recovered/Not Resolved]
  - FEV1/FVC ratio [Recovering/Resolving]
  - Liver function test abnormal [Recovered/Resolved]
  - Renal function test abnormal [Recovered/Resolved]
  - Orthopnoea [Recovered/Resolved]
  - Fluid overload [Recovering/Resolving]
  - Oedema peripheral [Recovering/Resolving]
  - Acute kidney injury [Recovered/Resolved]
  - Cardiac failure congestive [Recovering/Resolving]
  - Malaise [Recovering/Resolving]

NARRATIVE: CASE EVENT DATE: 20150503
